FAERS Safety Report 13034180 (Version 2)
Quarter: 2016Q4

REPORT INFORMATION
  Report Type: Spontaneous
  Country: IT (occurrence: IT)
  Receive Date: 20161216
  Receipt Date: 20161230
  Transmission Date: 20170207
  Serious: Yes (Other)
  Sender: FDA-Public Use
  Company Number: IT-009507513-1612ITA007161

PATIENT
  Age: 26 Year
  Sex: Female

DRUGS (7)
  1. ASPIRIN. [Suspect]
     Active Substance: ASPIRIN
     Indication: DRUG ABUSE
     Dosage: 20 DOSE UNITS, TOTAL
     Route: 048
     Dates: start: 20161107, end: 20161107
  2. DEURSIL [Suspect]
     Active Substance: URSODIOL
     Indication: DRUG ABUSE
     Dosage: 10 DOSE UNITS, TOTAL
     Route: 048
     Dates: start: 20161107, end: 20161107
  3. ENTACT [Suspect]
     Active Substance: ESCITALOPRAM OXALATE
     Indication: DRUG ABUSE
     Dosage: 28 DOSE UNITS, TOTAL
     Route: 048
     Dates: start: 20161107, end: 20161107
  4. SIMVASTATIN. [Suspect]
     Active Substance: SIMVASTATIN
     Indication: DRUG ABUSE
     Dosage: 14 DOSE UNITS, TOTAL
     Route: 048
     Dates: start: 20161107, end: 20161107
  5. IGROTON [Suspect]
     Active Substance: CHLORTHALIDONE
     Indication: DRUG ABUSE
     Dosage: 15 DOSE UNITS, TOTAL
     Route: 048
     Dates: start: 20161107, end: 20161107
  6. RIVOTRIL [Suspect]
     Active Substance: CLONAZEPAM
     Indication: DRUG ABUSE
     Dosage: STRENGTH: 2.5 MG/ML, 10 ML TOTAL
     Route: 048
     Dates: start: 20161107, end: 20161107
  7. TORVAST [Suspect]
     Active Substance: ATORVASTATIN
     Indication: DRUG ABUSE
     Dosage: 8 DOSE UNITS, TOTAL
     Route: 048
     Dates: start: 20161107, end: 20161107

REACTIONS (3)
  - Drug abuse [Recovering/Resolving]
  - Poisoning [Recovering/Resolving]
  - Sopor [Recovering/Resolving]

NARRATIVE: CASE EVENT DATE: 20161107
